FAERS Safety Report 11140394 (Version 22)
Quarter: 2016Q3

REPORT INFORMATION
  Report Type: Report from Study
  Country: CA (occurrence: CA)
  Receive Date: 20150527
  Receipt Date: 20160720
  Transmission Date: 20161109
  Serious: Yes (Other)
  Sender: FDA-Public Use
  Company Number: CA-ROCHE-1382044

PATIENT
  Age: 63 Year
  Sex: Female
  Weight: 43 kg

DRUGS (11)
  1. KADCYLA [Suspect]
     Active Substance: ADO-TRASTUZUMAB EMTANSINE
     Indication: HER-2 POSITIVE BREAST CANCER
     Route: 042
     Dates: start: 20141112, end: 20160622
  2. HERCEPTIN [Suspect]
     Active Substance: TRASTUZUMAB
     Indication: BREAST CANCER
     Route: 065
     Dates: start: 20060101, end: 20141104
  3. TAMOXIFEN [Suspect]
     Active Substance: TAMOXIFEN
     Indication: BREAST CANCER
     Route: 065
  4. XELODA [Suspect]
     Active Substance: CAPECITABINE
     Indication: BREAST CANCER
     Route: 048
     Dates: start: 20130802, end: 201404
  5. SENOKOT [Concomitant]
     Active Substance: SENNOSIDES
  6. TAXOL [Suspect]
     Active Substance: PACLITAXEL
     Indication: BREAST CANCER
     Route: 065
     Dates: start: 201303, end: 201308
  7. KADCYLA [Suspect]
     Active Substance: ADO-TRASTUZUMAB EMTANSINE
     Route: 042
     Dates: start: 20150318
  8. VINORELBINE [Suspect]
     Active Substance: VINORELBINE\VINORELBINE TARTRATE
     Indication: BREAST CANCER
     Route: 065
  9. GRAVOL [Concomitant]
     Active Substance: DIMENHYDRINATE
     Route: 048
  10. TAXOTERE [Suspect]
     Active Substance: DOCETAXEL
     Indication: BREAST CANCER
     Route: 065
     Dates: start: 20050101, end: 20060101
  11. TYLENOL [Concomitant]
     Active Substance: ACETAMINOPHEN

REACTIONS (58)
  - Dizziness [Unknown]
  - Aspartate aminotransferase increased [Not Recovered/Not Resolved]
  - Blood lactate dehydrogenase increased [Unknown]
  - Toothache [Not Recovered/Not Resolved]
  - Blood pressure increased [Unknown]
  - Cough [Recovered/Resolved]
  - Haemoglobin decreased [Not Recovered/Not Resolved]
  - Blood chloride decreased [Unknown]
  - Blood glucose increased [Unknown]
  - Malignant neoplasm progression [Unknown]
  - Stomatitis [Unknown]
  - Blood creatinine decreased [Unknown]
  - Blood sodium decreased [Not Recovered/Not Resolved]
  - Eosinophil percentage increased [Not Recovered/Not Resolved]
  - Blood alkaline phosphatase increased [Not Recovered/Not Resolved]
  - Blood glucose increased [Unknown]
  - Haematocrit decreased [Not Recovered/Not Resolved]
  - Cellulitis [Unknown]
  - Aspartate aminotransferase increased [Not Recovered/Not Resolved]
  - Dental caries [Unknown]
  - Blood urea decreased [Not Recovered/Not Resolved]
  - Abdominal pain [Recovered/Resolved]
  - Nausea [Unknown]
  - Eosinophil count increased [Unknown]
  - Hypertension [Unknown]
  - Monocyte count increased [Not Recovered/Not Resolved]
  - Tooth disorder [Unknown]
  - Monocyte percentage increased [Not Recovered/Not Resolved]
  - Blood urea decreased [Not Recovered/Not Resolved]
  - Drug ineffective [Unknown]
  - Infusion related reaction [Unknown]
  - Injection site extravasation [Recovered/Resolved]
  - Peripheral swelling [Not Recovered/Not Resolved]
  - Alanine aminotransferase increased [Unknown]
  - Hypertension [Unknown]
  - Alanine aminotransferase increased [Not Recovered/Not Resolved]
  - Blood uric acid decreased [Not Recovered/Not Resolved]
  - Diarrhoea [Recovered/Resolved]
  - Red blood cell count increased [Unknown]
  - Red cell distribution width increased [Unknown]
  - Red blood cell count decreased [Not Recovered/Not Resolved]
  - Body temperature decreased [Unknown]
  - Heart rate decreased [Unknown]
  - Blood lactate dehydrogenase increased [Not Recovered/Not Resolved]
  - Stress [Unknown]
  - Gingival bleeding [Recovered/Resolved]
  - Dyspnoea [Unknown]
  - Heart rate increased [Unknown]
  - Blood uric acid decreased [Not Recovered/Not Resolved]
  - Blood alkaline phosphatase increased [Not Recovered/Not Resolved]
  - Platelet count decreased [Unknown]
  - Lipase increased [Unknown]
  - Body temperature increased [Unknown]
  - Nasopharyngitis [Not Recovered/Not Resolved]
  - Gastrooesophageal reflux disease [Recovered/Resolved]
  - Dyspnoea [Recovered/Resolved]
  - Blood calcium decreased [Unknown]
  - Lymphocyte count decreased [Unknown]

NARRATIVE: CASE EVENT DATE: 2014
